FAERS Safety Report 4920213-X (Version None)
Quarter: 2006Q1

REPORT INFORMATION
  Report Type: 
  Country: None (occurrence: None)
  Receive Date: 20060223
  Receipt Date: 20051110
  Transmission Date: 20060701
  Serious: Yes (Disabling)
  Sender: FDA-Public Use
  Company Number: 2005AP05873

PATIENT
  Sex: Female

DRUGS (2)
  1. NEXIUM [Suspect]
     Indication: REFLUX OESOPHAGITIS
     Dosage: STOPPED FOR AN UNSPECIFIED PERIOD.
     Route: 048
     Dates: start: 20041015, end: 20050215
  2. NEXIUM [Suspect]
     Route: 048
     Dates: start: 20050201, end: 20051001

REACTIONS (3)
  - BACK PAIN [None]
  - DIFFICULTY IN WALKING [None]
  - MUSCLE SPASMS [None]
